FAERS Safety Report 7931141-X (Version None)
Quarter: 2011Q4

REPORT INFORMATION
  Report Type: 
  Country: None (occurrence: None)
  Receive Date: 20111121
  Receipt Date: 20111114
  Transmission Date: 20120403
  Serious: Yes (Other)
  Sender: FDA-Public Use
  Company Number: FR-ROXANE LABORATORIES, INC.-2011-RO-01645RO

PATIENT
  Age: 14 Year
  Sex: Male

DRUGS (1)
  1. MORPHINE [Suspect]
     Indication: SICKLE CELL ANAEMIA WITH CRISIS
     Route: 042

REACTIONS (3)
  - HYPERKALAEMIA [None]
  - RENAL FAILURE ACUTE [None]
  - URINARY RETENTION [None]
